FAERS Safety Report 14729305 (Version 1)
Quarter: 2018Q2

REPORT INFORMATION
  Report Type: Spontaneous
  Country: US (occurrence: US)
  Receive Date: 20180402
  Receipt Date: 20180402
  Transmission Date: 20180711
  Serious: No
  Sender: FDA-Public Use
  Company Number: None

PATIENT
  Age: 64 Year
  Sex: Male

DRUGS (1)
  1. VOSEVI [Suspect]
     Active Substance: SOFOSBUVIR\VELPATASVIR\VOXILAPREVIR

REACTIONS (5)
  - Blood pressure increased [None]
  - Paraesthesia oral [None]
  - Ageusia [None]
  - Chapped lips [None]
  - Hypoaesthesia oral [None]

NARRATIVE: CASE EVENT DATE: 20180402
